FAERS Safety Report 9911102 (Version 2)
Quarter: 2014Q2

REPORT INFORMATION
  Report Type: Spontaneous
  Country: US (occurrence: US)
  Receive Date: 20140219
  Receipt Date: 20140411
  Transmission Date: 20141212
  Serious: No
  Sender: FDA-Public Use
  Company Number: US-009507513-1402USA008486

PATIENT
  Sex: Female
  Weight: 86.17 kg

DRUGS (1)
  1. NEXPLANON [Suspect]
     Dosage: UNK
     Route: 059

REACTIONS (5)
  - Implant site irritation [Unknown]
  - Device kink [Unknown]
  - Implant site reaction [Unknown]
  - Implant site pain [Unknown]
  - Device extrusion [Unknown]
